FAERS Safety Report 20449354 (Version 1)
Quarter: 2022Q1

REPORT INFORMATION
  Report Type: Report from Study
  Country: RU (occurrence: RU)
  Receive Date: 20220209
  Receipt Date: 20220209
  Transmission Date: 20220423
  Serious: Yes (Other)
  Sender: FDA-Public Use
  Company Number: RU-SERVIER-S21010613

PATIENT

DRUGS (19)
  1. PEGASPARGASE [Suspect]
     Active Substance: PEGASPARGASE
     Indication: B-cell type acute leukaemia
     Dosage: 4100 U (2500 U/M?), ON DAY 3
     Route: 042
     Dates: start: 20210902, end: 20210902
  2. DEXAMETHASONE SODIUM PHOSPHATE [Suspect]
     Active Substance: DEXAMETHASONE SODIUM PHOSPHATE
     Indication: B-cell type acute leukaemia
     Dosage: 1 MG, BID
     Route: 048
     Dates: start: 20210831, end: 20210831
  3. DEXAMETHASONE SODIUM PHOSPHATE [Suspect]
     Active Substance: DEXAMETHASONE SODIUM PHOSPHATE
     Dosage: 2 MG, BID
     Route: 048
     Dates: start: 20210901, end: 20210901
  4. DEXAMETHASONE SODIUM PHOSPHATE [Suspect]
     Active Substance: DEXAMETHASONE SODIUM PHOSPHATE
     Dosage: 4 MG, BID
     Route: 048
     Dates: start: 20210902, end: 20210902
  5. DEXAMETHASONE SODIUM PHOSPHATE [Suspect]
     Active Substance: DEXAMETHASONE SODIUM PHOSPHATE
     Dosage: 5 MG, BID
     Route: 048
     Dates: start: 20210903, end: 20210928
  6. DEXAMETHASONE SODIUM PHOSPHATE [Suspect]
     Active Substance: DEXAMETHASONE SODIUM PHOSPHATE
     Dosage: 4 MG, BID
     Route: 048
     Dates: start: 20210929, end: 20210929
  7. DEXAMETHASONE SODIUM PHOSPHATE [Suspect]
     Active Substance: DEXAMETHASONE SODIUM PHOSPHATE
     Dosage: 3 MG, BID
     Route: 048
     Dates: start: 20210930, end: 20211001
  8. DEXAMETHASONE SODIUM PHOSPHATE [Suspect]
     Active Substance: DEXAMETHASONE SODIUM PHOSPHATE
     Dosage: 2 MG, BID
     Route: 048
     Dates: start: 20211002, end: 20211003
  9. DAUNORUBICIN HYDROCHLORIDE [Suspect]
     Active Substance: DAUNORUBICIN HYDROCHLORIDE
     Indication: B-cell type acute leukaemia
     Dosage: 74 MG, QD
     Route: 037
     Dates: start: 20210907, end: 20210907
  10. DAUNORUBICIN HYDROCHLORIDE [Suspect]
     Active Substance: DAUNORUBICIN HYDROCHLORIDE
     Dosage: 70 MG, QD
     Route: 037
     Dates: start: 20210921, end: 20210921
  11. TN UNSPECIFIED [Concomitant]
     Indication: B-cell type acute leukaemia
     Dosage: 12 MG, 1X/WEEK
     Route: 037
     Dates: start: 20210826, end: 20210921
  12. TN UNSPECIFIED [Concomitant]
     Indication: B-cell type acute leukaemia
     Dosage: 50 MG, 1X/WEEK
     Route: 037
     Dates: start: 20210826, end: 20210921
  13. TN UNSPECIFIED [Concomitant]
     Indication: B-cell type acute leukaemia
     Dosage: 10 MG, 1X/WEEK
     Route: 037
     Dates: start: 20210826, end: 20210921
  14. TN UNSPECIFIED [Concomitant]
     Indication: B-cell type acute leukaemia
     Dosage: 2 MG, 1X/WEEK
     Route: 037
     Dates: start: 20210907, end: 20210921
  15. COTRIMOXAZOLE [Concomitant]
     Active Substance: SULFAMETHOXAZOLE\TRIMETHOPRIM
     Indication: Pneumocystis jirovecii pneumonia
     Dosage: 480 MG, BID
     Route: 048
     Dates: start: 20210824, end: 20211014
  16. COTRIMOXAZOLE [Concomitant]
     Active Substance: SULFAMETHOXAZOLE\TRIMETHOPRIM
     Indication: Prophylaxis
  17. TN UNSEPCIFIED [Concomitant]
     Indication: Prophylaxis
     Dosage: 1 DF, TID
     Route: 048
     Dates: start: 20210824, end: 20211014
  18. TN UNSEPCIFIED [Concomitant]
     Indication: Stomatitis
  19. Almagel [Concomitant]
     Indication: Gastritis prophylaxis
     Dosage: 15 ML, BID
     Route: 048
     Dates: start: 20210831, end: 20210923

REACTIONS (6)
  - Hypofibrinogenaemia [Recovered/Resolved]
  - Hyperbilirubinaemia [Recovering/Resolving]
  - Hepatotoxicity [Recovering/Resolving]
  - Hepatosplenomegaly [Recovering/Resolving]
  - Lymphocyte count decreased [Not Recovered/Not Resolved]
  - Pneumonia [Recovered/Resolved]

NARRATIVE: CASE EVENT DATE: 20210916
